FAERS Safety Report 11307654 (Version 1)
Quarter: 2015Q3

REPORT INFORMATION
  Report Type: Spontaneous
  Country: US (occurrence: US)
  Receive Date: 20150724
  Receipt Date: 20150724
  Transmission Date: 20151125
  Serious: No
  Sender: FDA-Public Use
  Company Number: US-NOVEN PHARMACEUTICALS, INC.-US2015000378

PATIENT
  Age: 55 Year
  Sex: Female

DRUGS (3)
  1. BRISDELLE [Suspect]
     Active Substance: PAROXETINE MESYLATE
     Indication: DEPRESSION
  2. BRISDELLE [Suspect]
     Active Substance: PAROXETINE MESYLATE
     Indication: ANXIETY
     Dosage: 7.5 MG, BEDTIME
     Route: 048
     Dates: start: 201504
  3. XARELTO [Concomitant]
     Active Substance: RIVAROXABAN
     Indication: BLOOD VISCOSITY DECREASED
     Dosage: 20 MG, UNK

REACTIONS (3)
  - Malaise [Unknown]
  - Drug prescribing error [Unknown]
  - Headache [Unknown]

NARRATIVE: CASE EVENT DATE: 201504
